FAERS Safety Report 7334783-8 (Version None)
Quarter: 2011Q1

REPORT INFORMATION
  Report Type: 
  Country: None (occurrence: None)
  Receive Date: 20110307
  Receipt Date: 20110222
  Transmission Date: 20110831
  Serious: Yes (Hospitalization, Other)
  Sender: FDA-Public Use
  Company Number: PHHY2011AU05252

PATIENT
  Sex: Male

DRUGS (14)
  1. BENZODIAZEPINES [Concomitant]
  2. RISPERIDONE [Concomitant]
  3. DIAZEPAM [Concomitant]
     Dosage: 5MG BD
  4. PARACETAMOL [Concomitant]
     Dosage: 1G QID PRN
  5. CLOZARIL [Suspect]
     Indication: SCHIZOPHRENIA
     Dosage: 300 MG, UNK
     Dates: start: 20090526
  6. CLOZARIL [Suspect]
     Dosage: 150 MG, UNK
  7. LITHIUM CARBONATE [Concomitant]
  8. VALPROATE SODIUM [Concomitant]
     Dosage: 1000 MG MORNING
  9. VALPROATE SODIUM [Concomitant]
     Dosage: 1500 MG NIGHT
  10. MINTEC [Concomitant]
     Dosage: 0.2ML TDS PRN
  11. OXYBUTYNIN [Concomitant]
     Dosage: 2.5MG BD
  12. GLIBENCLAMIDE [Concomitant]
     Dosage: 5MG  MORNING
  13. LEVOTHYROXINE SODIUM [Concomitant]
     Dosage: 50 MCG MORNING
  14. RANITIDINE [Concomitant]

REACTIONS (8)
  - MENTAL DISORDER [None]
  - AGITATION [None]
  - ANXIETY [None]
  - ANTIPSYCHOTIC DRUG LEVEL BELOW THERAPEUTIC [None]
  - DIZZINESS [None]
  - MANIA [None]
  - SELF-INJURIOUS IDEATION [None]
  - MALAISE [None]
